FAERS Safety Report 24366303 (Version 1)
Quarter: 2024Q3

REPORT INFORMATION
  Report Type: Spontaneous
  Country: US (occurrence: US)
  Receive Date: 20240926
  Receipt Date: 20240926
  Transmission Date: 20241016
  Serious: No
  Sender: MERCK
  Company Number: US-009507513-2408USA010520

PATIENT
  Sex: Female

DRUGS (10)
  1. TEMODAR [Suspect]
     Active Substance: TEMOZOLOMIDE
     Indication: Neuroblastoma
     Dosage: UNK
     Route: 048
  2. TEMODAR [Suspect]
     Active Substance: TEMOZOLOMIDE
     Indication: Bone marrow disorder
  3. CYCLOPHOSPHAMIDE [Concomitant]
     Active Substance: CYCLOPHOSPHAMIDE
     Indication: Neuroblastoma
  4. CYCLOPHOSPHAMIDE [Concomitant]
     Active Substance: CYCLOPHOSPHAMIDE
     Indication: Bone marrow disorder
  5. TOPOTECAN [Concomitant]
     Active Substance: TOPOTECAN HYDROCHLORIDE
     Indication: Neuroblastoma
     Dosage: UNK
  6. TOPOTECAN [Concomitant]
     Active Substance: TOPOTECAN HYDROCHLORIDE
     Indication: Bone marrow disorder
  7. IRINOTECAN [Concomitant]
     Active Substance: IRINOTECAN
     Indication: Neuroblastoma
     Dosage: UNK
  8. IRINOTECAN [Concomitant]
     Active Substance: IRINOTECAN
     Indication: Bone marrow disorder
  9. DINUTUXIMAB [Concomitant]
     Active Substance: DINUTUXIMAB
     Indication: Neuroblastoma
     Dosage: UNK
  10. DINUTUXIMAB [Concomitant]
     Active Substance: DINUTUXIMAB
     Indication: Bone marrow disorder

REACTIONS (1)
  - Product use in unapproved indication [Unknown]
